FAERS Safety Report 6943679-2 (Version None)
Quarter: 2010Q3

REPORT INFORMATION
  Report Type: 
  Country: None (occurrence: None)
  Receive Date: 20100826
  Receipt Date: 20100819
  Transmission Date: 20110219
  Serious: Yes (Other)
  Sender: FDA-Public Use
  Company Number: US-GENENTECH-305603

PATIENT
  Sex: Male
  Weight: 48 kg

DRUGS (2)
  1. NUTROPIN [Suspect]
     Indication: GROWTH HORMONE DEFICIENCY
     Dosage: 2.9 MG, QD
     Route: 058
     Dates: start: 19970101
  2. NUTROPIN [Suspect]
     Indication: NOONAN SYNDROME

REACTIONS (1)
  - CONVULSION [None]
